FAERS Safety Report 12828370 (Version 1)
Quarter: 2016Q4

REPORT INFORMATION
  Report Type: Spontaneous
  Country: US (occurrence: US)
  Receive Date: 20161007
  Receipt Date: 20161007
  Transmission Date: 20170207
  Serious: No
  Sender: FDA-Public Use
  Company Number: US-KALEO, INC-EVZI20160011

PATIENT
  Age: 33 Year
  Sex: Male

DRUGS (1)
  1. EVZIO [Suspect]
     Active Substance: NALOXONE HYDROCHLORIDE
     Indication: ACCIDENTAL EXPOSURE TO PRODUCT
     Dosage: ONCE IM OR SC
     Dates: start: 201608

REACTIONS (2)
  - Accidental exposure to product [None]
  - No adverse event [None]

NARRATIVE: CASE EVENT DATE: 201608
